FAERS Safety Report 8532443-9 (Version None)
Quarter: 2012Q3

REPORT INFORMATION
  Report Type: 
  Country: None (occurrence: None)
  Receive Date: 20120724
  Receipt Date: 20080523
  Transmission Date: 20120928
  Serious: No
  Sender: FDA-Public Use
  Company Number: 2008BI013635

PATIENT
  Sex: Male

DRUGS (1)
  1. TYSABRI [Suspect]
     Indication: MULTIPLE SCLEROSIS
     Route: 042
     Dates: start: 20080429

REACTIONS (2)
  - URINARY TRACT INFECTION [None]
  - MOOD ALTERED [None]
